FAERS Safety Report 20539250 (Version 1)
Quarter: 2022Q1

REPORT INFORMATION
  Report Type: Report from Study
  Country: US (occurrence: US)
  Receive Date: 20220302
  Receipt Date: 20220302
  Transmission Date: 20220424
  Serious: Yes (Death)
  Sender: FDA-Public Use
  Company Number: US-JNJFOC-20210935515

PATIENT
  Sex: Male

DRUGS (13)
  1. STELARA [Suspect]
     Active Substance: USTEKINUMAB
     Indication: Product used for unknown indication
     Route: 058
     Dates: start: 20200105
  2. STELARA [Suspect]
     Active Substance: USTEKINUMAB
  3. CARVEDILOL [Concomitant]
     Active Substance: CARVEDILOL
  4. ENBREL [Concomitant]
     Active Substance: ETANERCEPT
  5. OXYCODONE [Concomitant]
     Active Substance: OXYCODONE
     Dosage: 10-325 MG, 5-325MG
  6. PANTOPRAZOLE [Concomitant]
     Active Substance: PANTOPRAZOLE
  7. PREDNISONE [Concomitant]
     Active Substance: PREDNISONE
  8. SULFAMETHOXAZOLE [Concomitant]
     Active Substance: SULFAMETHOXAZOLE
     Dosage: 800-160 M
  9. FOLIC ACID [Concomitant]
     Active Substance: FOLIC ACID
  10. METHOTREXATE [Concomitant]
     Active Substance: METHOTREXATE
  11. SULINDAC [Concomitant]
     Active Substance: SULINDAC
  12. OMEPRAZOLE [Concomitant]
     Active Substance: OMEPRAZOLE
  13. COREG [Concomitant]
     Active Substance: CARVEDILOL

REACTIONS (3)
  - Death [Fatal]
  - Pain [Unknown]
  - Swelling [Unknown]
